FAERS Safety Report 13129470 (Version 1)
Quarter: 2017Q1

REPORT INFORMATION
  Report Type: Spontaneous
  Country: FR (occurrence: FR)
  Receive Date: 20170119
  Receipt Date: 20170119
  Transmission Date: 20170428
  Serious: Yes (Death)
  Sender: FDA-Public Use
  Company Number: FR-ACCORD-047426

PATIENT
  Age: 81 Year
  Sex: Male

DRUGS (14)
  1. STAGID [Concomitant]
     Active Substance: METFORMIN PAMOATE
     Dates: start: 201605
  2. KARDEGIC [Concomitant]
     Active Substance: ASPIRIN LYSINE
  3. PARACETAMOL [Concomitant]
     Active Substance: ACETAMINOPHEN
  4. FLUOROURACIL ACCORD [Suspect]
     Active Substance: FLUOROURACIL
     Indication: COLON CANCER METASTATIC
     Dosage: 10TH CYCLE
     Route: 042
     Dates: start: 20161122, end: 20161122
  5. ARANESP [Concomitant]
     Active Substance: DARBEPOETIN ALFA
  6. ZARZIO [Suspect]
     Active Substance: FILGRASTIM
     Indication: CHEMOTHERAPY CYTOKINE PROPHYLAXIS
     Dosage: 30 MU/0,5 ML SOLUTION FOR INJECTION OR FOR INFUSION IN PRE-FILLED SYRINGE
     Route: 042
     Dates: start: 20161126, end: 20161129
  7. ATARAX [Concomitant]
     Active Substance: HYDROXYZINE HYDROCHLORIDE
  8. EUPANTOL [Concomitant]
     Active Substance: PANTOPRAZOLE SODIUM
  9. COTAREG [Concomitant]
     Active Substance: HYDROCHLOROTHIAZIDE\VALSARTAN
     Dosage: 80 MG/12,5 MG
     Dates: start: 201307
  10. OXALIPLATIN KABI [Suspect]
     Active Substance: OXALIPLATIN
     Indication: COLON CANCER METASTATIC
     Dosage: 10TH CYCLE
     Route: 042
     Dates: start: 20161122, end: 20161122
  11. PRAVASTATIN. [Concomitant]
     Active Substance: PRAVASTATIN
     Dates: start: 2013
  12. TARDYFERON B9 [Concomitant]
     Active Substance: FERROUS SULFATE\FOLIC ACID
  13. FOLINIC ACID [Concomitant]
     Active Substance: LEUCOVORIN
     Indication: COLON CANCER METASTATIC
  14. GLYCEROL\PARAFFIN [Concomitant]
     Active Substance: GLYCERIN\PARAFFIN

REACTIONS (1)
  - Interstitial lung disease [Fatal]

NARRATIVE: CASE EVENT DATE: 20161127
